FAERS Safety Report 8404291-1 (Version None)
Quarter: 2012Q2

REPORT INFORMATION
  Report Type: 
  Country: None (occurrence: None)
  Receive Date: 20120601
  Receipt Date: 20120523
  Transmission Date: 20120825
  Serious: Yes (Other)
  Sender: FDA-Public Use
  Company Number: JP-VERTEX PHARMACEUTICALS INC.-AE-2012-007780

PATIENT
  Age: 66 Year
  Sex: Male

DRUGS (10)
  1. TELAVIC (TELAPREVIR) [Suspect]
     Route: 048
     Dates: start: 20120428
  2. PEGINTERFERON ALFA-2B [Concomitant]
     Indication: HEPATITIS C
     Route: 051
     Dates: start: 20120324
  3. TELAVIC (TELAPREVIR) [Suspect]
     Indication: HEPATITIS C
     Route: 048
     Dates: start: 20120324, end: 20120324
  4. TELAVIC (TELAPREVIR) [Suspect]
     Route: 048
     Dates: start: 20120424
  5. RIKKUNSHITO [Concomitant]
     Route: 048
     Dates: start: 20120323
  6. REBETOL [Concomitant]
     Route: 048
     Dates: start: 20120421
  7. REBETOL [Concomitant]
     Indication: HEPATITIS C
     Route: 048
     Dates: start: 20120324
  8. PEGINTERFERON ALFA-2B [Concomitant]
     Route: 051
     Dates: start: 20120505
  9. ALLEGRA [Concomitant]
     Route: 048
     Dates: start: 20120323
  10. REBETOL [Concomitant]
     Route: 048
     Dates: start: 20120424

REACTIONS (1)
  - WHITE BLOOD CELL COUNT DECREASED [None]
